FAERS Safety Report 9038626 (Version 2)
Quarter: 2013Q1

REPORT INFORMATION
  Report Type: Spontaneous
  Country: IT (occurrence: IT)
  Receive Date: 20130129
  Receipt Date: 20130220
  Transmission Date: 20140127
  Serious: Yes (Hospitalization)
  Sender: FDA-Public Use
  Company Number: IT-ABBOTT-13P-083-1041977-00

PATIENT
  Age: 26 Year
  Sex: Female

DRUGS (4)
  1. DEPAKIN [Suspect]
     Indication: INTENTIONAL SELF-INJURY
     Dosage: 20 DOSAGE FORM; GASTRO-RESISTANT TABLET; TOTAL
     Route: 048
     Dates: start: 20121212, end: 20121212
  2. DEPAKIN [Suspect]
     Dosage: 34 DOSAGE FORM: GASTRO-RESISTANT TABLET; TOTAL
     Route: 048
     Dates: start: 20121212, end: 20121212
  3. DELORAZEPAM [Concomitant]
     Indication: PRODUCT USED FOR UNKNOWN INDICATION
  4. ZYPREXA [Concomitant]
     Indication: PRODUCT USED FOR UNKNOWN INDICATION

REACTIONS (2)
  - Toxicity to various agents [Recovering/Resolving]
  - Depression [Recovering/Resolving]
